FAERS Safety Report 5371287-6 (Version None)
Quarter: 2007Q2

REPORT INFORMATION
  Report Type: 
  Country: None (occurrence: None)
  Receive Date: 20070615
  Receipt Date: 20061218
  Transmission Date: 20071010
  Serious: Yes (Other)
  Sender: FDA-Public Use
  Company Number: 200618647US

PATIENT
  Age: 60 Year
  Sex: Male
  Weight: 84 kg

DRUGS (2)
  1. LANTUS [Suspect]
     Indication: DIABETES MELLITUS
     Dosage: 45 U BID SC
     Route: 058
  2. OPTICLIK [Suspect]
     Indication: DIABETES MELLITUS

REACTIONS (1)
  - HYPERGLYCAEMIA [None]
